FAERS Safety Report 4372533-8 (Version None)
Quarter: 2004Q2

REPORT INFORMATION
  Report Type: 
  Country: None (occurrence: None)
  Receive Date: 20040608
  Receipt Date: 20040319
  Transmission Date: 20050107
  Serious: Yes (Other)
  Sender: FDA-Public Use
  Company Number: PHNU2004DE01285

PATIENT
  Age: 63 Year

DRUGS (6)
  1. PROVAS [Suspect]
     Indication: HYPERTENSION
     Dosage: 1 DF, QD
     Route: 048
     Dates: start: 20030422, end: 20030520
  2. MOXONIDINE [Suspect]
     Indication: HYPERTENSION
     Route: 048
  3. AMLODIPINE [Suspect]
     Indication: HYPERTENSION
     Route: 048
  4. HYDROCHLOROTHIAZIDE [Suspect]
     Route: 048
  5. REPAGLINIDE [Suspect]
     Indication: DIABETES MELLITUS
     Route: 048
  6. FENOFIBRATE [Suspect]
     Indication: HYPERCHOLESTEROLAEMIA
     Dosage: UNK, UNK
     Route: 048

REACTIONS (1)
  - DEPRESSED MOOD [None]
